FAERS Safety Report 20704937 (Version 1)
Quarter: 2022Q2

REPORT INFORMATION
  Report Type: Spontaneous
  Country: IN (occurrence: None)
  Receive Date: 20220413
  Receipt Date: 20220413
  Transmission Date: 20220720
  Serious: Yes (Hospitalization, Other)
  Sender: FDA-Public Use
  Company Number: IN-INFO-001428

PATIENT
  Age: 71 Year
  Sex: Female

DRUGS (4)
  1. ZOLEDRONIC ACID [Suspect]
     Active Substance: ZOLEDRONIC ACID
     Indication: Osteoporosis
     Route: 042
  2. TELMISARTAN [Concomitant]
     Active Substance: TELMISARTAN
     Dosage: FOR THE PAST 7-8 YEARS
     Route: 065
  3. FEBUXOSTAT [Concomitant]
     Active Substance: FEBUXOSTAT
     Dosage: FOR THE PAST 7-8 YEARS
     Route: 065
  4. METFORMIN [Concomitant]
     Active Substance: METFORMIN HYDROCHLORIDE
     Dosage: FOR THE PAST 7-8 YEARS
     Route: 065

REACTIONS (2)
  - Urticarial vasculitis [Recovered/Resolved]
  - Off label use [Recovered/Resolved]
